FAERS Safety Report 14437901 (Version 2)
Quarter: 2018Q2

REPORT INFORMATION
  Report Type: Report from Study
  Country: US (occurrence: US)
  Receive Date: 20180125
  Receipt Date: 20180510
  Transmission Date: 20180711
  Serious: Yes (Other)
  Sender: FDA-Public Use
  Company Number: PHEH2018US002051

PATIENT
  Sex: Male

DRUGS (2)
  1. ENTRESTO [Suspect]
     Active Substance: SACUBITRIL\VALSARTAN
     Indication: PRODUCT USED FOR UNKNOWN INDICATION
     Dosage: UNK
     Route: 065
  2. LASIX [Concomitant]
     Active Substance: FUROSEMIDE
     Indication: PRODUCT USED FOR UNKNOWN INDICATION
     Route: 065

REACTIONS (11)
  - Vision blurred [Unknown]
  - Dyspnoea [Recovering/Resolving]
  - Insomnia [Unknown]
  - Hypersomnia [Recovering/Resolving]
  - Fatigue [Unknown]
  - Dizziness [Recovered/Resolved]
  - Disorientation [Unknown]
  - Sleep disorder [Recovering/Resolving]
  - Cardiac valve disease [Unknown]
  - Pulmonary oedema [Recovering/Resolving]
  - Balance disorder [Unknown]
